FAERS Safety Report 23924739 (Version 1)
Quarter: 2024Q2

REPORT INFORMATION
  Report Type: Spontaneous
  Country: US (occurrence: None)
  Receive Date: 20240531
  Receipt Date: 20240531
  Transmission Date: 20240716
  Serious: Yes (Hospitalization)
  Sender: FDA-Public Use
  Company Number: US-ROCHE-3569373

PATIENT
  Sex: Female

DRUGS (8)
  1. VABYSMO [Suspect]
     Active Substance: FARICIMAB\FARICIMAB-SVOA
     Indication: Age-related macular degeneration
     Route: 065
  2. PREDNISONE [Concomitant]
     Active Substance: PREDNISONE
  3. SYSTANE ULTRA PRESERVATIVE FREE [Concomitant]
     Active Substance: POLYETHYLENE GLYCOL 400\PROPYLENE GLYCOL
  4. FISH OIL [Concomitant]
     Active Substance: FISH OIL
  5. PREDNISOLONE [Concomitant]
     Active Substance: PREDNISOLONE
  6. LISINOPRIL [Concomitant]
     Active Substance: LISINOPRIL
  7. AMLODIPINE [Concomitant]
     Active Substance: AMLODIPINE BESYLATE
  8. DORZOLAMIDE HYDROCHLORIDE AND TIMOLOL MALEATE [Concomitant]
     Active Substance: DORZOLAMIDE HYDROCHLORIDE\TIMOLOL MALEATE

REACTIONS (14)
  - Eye naevus [Unknown]
  - Retinal haemorrhage [Unknown]
  - Flank pain [Unknown]
  - Pancreatitis acute [Unknown]
  - Choroidal neovascularisation [Unknown]
  - Retinal vasculitis [Unknown]
  - Ocular hypertension [Unknown]
  - Presbyopia [Unknown]
  - Dry eye [Unknown]
  - Enteritis [Unknown]
  - Chorioretinitis [Unknown]
  - Iridocyclitis [Unknown]
  - Vitritis [Unknown]
  - Epiretinal membrane [Unknown]

NARRATIVE: CASE EVENT DATE: 20231101
